FAERS Safety Report 17479037 (Version 2)
Quarter: 2020Q2

REPORT INFORMATION
  Report Type: Spontaneous
  Country: US (occurrence: US)
  Receive Date: 20200228
  Receipt Date: 20200416
  Transmission Date: 20200713
  Serious: Yes (Other)
  Sender: FDA-Public Use
  Company Number: NVSC2020US052014

PATIENT
  Sex: Female

DRUGS (2)
  1. LATANOPROSTENE BUNOD [Concomitant]
     Active Substance: LATANOPROSTENE BUNOD
     Indication: PRODUCT USED FOR UNKNOWN INDICATION
     Route: 065
  2. PREDNISOLONE ACETATE. [Suspect]
     Active Substance: PREDNISOLONE ACETATE
     Indication: PRODUCT USED FOR UNKNOWN INDICATION
     Dosage: UNK (6 TIMES A DAY)
     Route: 065

REACTIONS (7)
  - Blood pressure increased [Unknown]
  - Malaise [Unknown]
  - Feeling abnormal [Unknown]
  - Gait disturbance [Unknown]
  - Blood glucose increased [Unknown]
  - Macular oedema [Unknown]
  - Hyperadrenalism [Unknown]
